FAERS Safety Report 10371259 (Version 2)
Quarter: 2014Q4

REPORT INFORMATION
  Report Type: Spontaneous
  Country: US (occurrence: US)
  Receive Date: 20140808
  Receipt Date: 20141125
  Transmission Date: 20150528
  Serious: Yes (Other)
  Sender: FDA-Public Use
  Company Number: US-TEVA-500637USA

PATIENT
  Age: 34 Year
  Sex: Female
  Weight: 59.93 kg

DRUGS (1)
  1. PARAGARD T380A [Suspect]
     Active Substance: COPPER
     Indication: CONTRACEPTION
     Route: 015
     Dates: start: 20040510, end: 20140805

REACTIONS (2)
  - Device breakage [Not Recovered/Not Resolved]
  - Expired device used [Recovered/Resolved]

NARRATIVE: CASE EVENT DATE: 20040510
